FAERS Safety Report 7179762-9 (Version None)
Quarter: 2010Q4

REPORT INFORMATION
  Report Type: 
  Country: None (occurrence: None)
  Receive Date: 20101208
  Receipt Date: 20101202
  Transmission Date: 20110411
  Serious: Yes (Hospitalization, Other)
  Sender: FDA-Public Use
  Company Number: 20109671

PATIENT
  Sex: Female

DRUGS (1)
  1. LIORESAL [Suspect]
     Indication: MUSCLE SPASTICITY
     Dosage: SEE B5 MCG, DAILY, INTRATHECAL
     Route: 037

REACTIONS (5)
  - ABDOMINAL DISTENSION [None]
  - ALTERED STATE OF CONSCIOUSNESS [None]
  - INFLAMMATION [None]
  - PULMONARY EMBOLISM [None]
  - SPINAL CORD NEOPLASM [None]
